FAERS Safety Report 6257214-8 (Version None)
Quarter: 2009Q3

REPORT INFORMATION
  Report Type: 
  Country: None (occurrence: None)
  Receive Date: 20090706
  Receipt Date: 20090623
  Transmission Date: 20100115
  Serious: Yes (Other)
  Sender: FDA-Public Use
  Company Number: NL-ELI_LILLY_AND_COMPANY-NL200906005563

PATIENT
  Sex: Male
  Weight: 93 kg

DRUGS (1)
  1. STRATTERA [Suspect]
     Dosage: 40 MG, 2/D
     Route: 065

REACTIONS (1)
  - MYOCARDITIS [None]
